FAERS Safety Report 21599504 (Version 1)
Quarter: 2022Q4

REPORT INFORMATION
  Report Type: Spontaneous
  Country: AU (occurrence: AU)
  Receive Date: 20221115
  Receipt Date: 20221115
  Transmission Date: 20230113
  Serious: Yes (Other)
  Sender: FDA-Public Use
  Company Number: AU-Vifor (International) Inc.-VIT-2022-07713

PATIENT
  Sex: Female

DRUGS (1)
  1. VELTASSA [Suspect]
     Active Substance: PATIROMER
     Indication: Hyperkalaemia
     Dosage: START AT LOW DOSE OF 4.2 G DAILY AND INCREASE TO TWICE DAILY IF TOLERATED
     Route: 048
     Dates: start: 202208, end: 2022

REACTIONS (2)
  - Diverticulitis [Unknown]
  - Off label use [Unknown]

NARRATIVE: CASE EVENT DATE: 20220101
